FAERS Safety Report 16825717 (Version 1)
Quarter: 2019Q3

REPORT INFORMATION
  Report Type: Spontaneous
  Country: US (occurrence: US)
  Receive Date: 20190919
  Receipt Date: 20190919
  Transmission Date: 20191005
  Serious: No
  Sender: FDA-Public Use
  Company Number: US-AMGEN-USASP2019147470

PATIENT
  Age: 55 Year
  Sex: Female

DRUGS (2)
  1. REPATHA [Suspect]
     Active Substance: EVOLOCUMAB
     Indication: BLOOD CHOLESTEROL ABNORMAL
  2. REPATHA [Suspect]
     Active Substance: EVOLOCUMAB
     Indication: TYPE IIA HYPERLIPIDAEMIA
     Dosage: 140 MILLIGRAM, Q2WK
     Route: 065
     Dates: start: 201903

REACTIONS (13)
  - Weight decreased [Recovering/Resolving]
  - Ear disorder [Unknown]
  - Myalgia [Recovering/Resolving]
  - Nausea [Recovering/Resolving]
  - Alopecia [Recovering/Resolving]
  - Asthenia [Unknown]
  - Gastrointestinal disorder [Unknown]
  - Hyperhidrosis [Recovering/Resolving]
  - Nephropathy [Recovering/Resolving]
  - Sinusitis [Not Recovered/Not Resolved]
  - Influenza [Recovering/Resolving]
  - Decreased appetite [Unknown]
  - Laryngitis [Not Recovered/Not Resolved]

NARRATIVE: CASE EVENT DATE: 2019
